FAERS Safety Report 5771341-0 (Version None)
Quarter: 2008Q2

REPORT INFORMATION
  Report Type: 
  Country: None (occurrence: None)
  Receive Date: 20080613
  Receipt Date: 20080603
  Transmission Date: 20081010
  Serious: Yes (Life-Threatening)
  Sender: FDA-Public Use
  Company Number: GB-JNJFOC-20080202284

PATIENT
  Age: 17 Year
  Sex: Male

DRUGS (5)
  1. REMICADE [Suspect]
     Route: 042
  2. REMICADE [Suspect]
     Indication: COLITIS ULCERATIVE
     Route: 042
  3. AZATHIOPRINE [Concomitant]
     Indication: COLITIS
     Route: 048
  4. COSMOFER [Concomitant]
     Indication: ANAEMIA
     Route: 042
  5. PREDNISOLONE [Concomitant]
     Indication: COLITIS
     Route: 048

REACTIONS (3)
  - HYPOTENSION [None]
  - INFUSION RELATED REACTION [None]
  - SWELLING FACE [None]
